FAERS Safety Report 15884007 (Version 1)
Quarter: 2019Q1

REPORT INFORMATION
  Report Type: Spontaneous
  Country: US (occurrence: US)
  Receive Date: 20190129
  Receipt Date: 20190129
  Transmission Date: 20190417
  Serious: Yes (Other)
  Sender: FDA-Public Use
  Company Number: US-BAYER-2019-019416

PATIENT
  Age: 71 Year
  Sex: Female
  Weight: 125 kg

DRUGS (1)
  1. MIRALAX [Suspect]
     Active Substance: POLYETHYLENE GLYCOL 3350
     Indication: GASTROINTESTINAL DISORDER
     Dosage: UNK UNK, PRN
     Route: 048
     Dates: start: 2008

REACTIONS (2)
  - Breast cancer [None]
  - Blood magnesium increased [Unknown]

NARRATIVE: CASE EVENT DATE: 20181106
